FAERS Safety Report 8139991-4 (Version None)
Quarter: 2012Q1

REPORT INFORMATION
  Report Type: 
  Country: None (occurrence: None)
  Receive Date: 20120215
  Receipt Date: 20120206
  Transmission Date: 20120608
  Serious: Yes (Hospitalization, Disabling)
  Sender: FDA-Public Use
  Company Number: US-MERCK-1111USA03248

PATIENT
  Age: 59 Year
  Sex: Female
  Weight: 82 kg

DRUGS (5)
  1. ALENDRONATE SODIUM [Suspect]
     Route: 048
     Dates: start: 20080402, end: 20080801
  2. ALENDRONATE SODIUM [Suspect]
     Route: 048
     Dates: start: 20081030, end: 20090701
  3. FOSAMAX [Suspect]
     Indication: OSTEOPOROSIS
     Route: 048
     Dates: start: 20030101, end: 20101201
  4. ALENDRONATE SODIUM [Suspect]
     Route: 048
     Dates: start: 20091101
  5. FOSAMAX [Suspect]
     Indication: OSTEOPENIA
     Route: 048
     Dates: start: 20030101, end: 20101201

REACTIONS (6)
  - FEMUR FRACTURE [None]
  - UPPER-AIRWAY COUGH SYNDROME [None]
  - HYPERTENSION [None]
  - BLOOD CHOLESTEROL INCREASED [None]
  - HYPOTHYROIDISM [None]
  - FOOT FRACTURE [None]
